FAERS Safety Report 7671313-5 (Version None)
Quarter: 2011Q3

REPORT INFORMATION
  Report Type: 
  Country: None (occurrence: None)
  Receive Date: 20110809
  Receipt Date: 20110805
  Transmission Date: 20111222
  Serious: Yes (Hospitalization)
  Sender: FDA-Public Use
  Company Number: HK-AMGEN-HKGCT2011024470

PATIENT
  Age: 85 Year
  Sex: Female

DRUGS (24)
  1. SENNA [Concomitant]
     Dosage: UNK UNK, PRN
     Dates: start: 20110408
  2. AUGMENTIN '125' [Concomitant]
     Dosage: 375 MG, TID
     Dates: start: 20110408
  3. ALBUTEROL [Concomitant]
     Dosage: UNK UNK, QID
     Dates: start: 20110418
  4. CHLORPHENIRAMINE MALEATE [Concomitant]
     Dosage: 4 MG, PRN
     Dates: start: 20110418
  5. FUROSEMIDE [Concomitant]
     Dosage: 40 MG, UNK
     Dates: start: 20110411
  6. POTASSIUM CHLORIDE [Concomitant]
     Dosage: 20 ML, Q2H
     Dates: start: 20110413
  7. CLOTRIMAZOLE [Concomitant]
     Dosage: UNK
     Dates: start: 20110414
  8. TIMENTIN [Concomitant]
     Dosage: 3.2 G, UNK
     Dates: start: 20110415
  9. METOPROLOL TARTRATE [Concomitant]
     Dosage: UNK UNK, BID
     Dates: start: 20110406
  10. VALSARTAN [Concomitant]
     Dosage: UNK UNK, QD
     Dates: start: 20110414
  11. HYDROXYPROPYL METHYLCELLULOSE [Concomitant]
     Dosage: UNK UNK, PRN
     Dates: start: 20110418
  12. BLINDED DARBEPOETIN ALFA [Suspect]
     Indication: CARDIAC FAILURE
     Dates: start: 20100629, end: 20110222
  13. LACTULOSE [Concomitant]
     Dosage: 10 ML, PRN
     Dates: start: 20110402
  14. MULTI-VITAMINS [Concomitant]
     Dosage: UNK
     Dates: start: 20110418
  15. ASPIRIN [Concomitant]
     Dosage: 100 MG, UNK
     Dates: start: 20110406
  16. FORTIFER [Concomitant]
     Dosage: UNK
     Dates: start: 20110418
  17. LASIX [Concomitant]
     Dosage: UNK
  18. ALLOPURINOL [Concomitant]
     Dosage: UNK UNK, QD
     Dates: start: 20110406
  19. PLACEBO [Suspect]
     Indication: CARDIAC FAILURE
     Dates: start: 20100629, end: 20110222
  20. NITROGLYCERIN [Concomitant]
     Dosage: UNK UNK, PRN
     Route: 060
     Dates: start: 20110406
  21. FAMOTIDINE [Concomitant]
     Dosage: 20 MG, UNK
     Dates: start: 20110406
  22. SODIUM PHOSPHATES [Concomitant]
     Dosage: 133 UNK, UNK
     Route: 054
     Dates: start: 20110407
  23. SIMVASTATIN [Concomitant]
     Dosage: 10 MG, UNK
     Dates: start: 20110408
  24. BISACODYL [Concomitant]
     Dosage: 10 MG, PRN
     Dates: start: 20110408

REACTIONS (2)
  - CARDIAC FAILURE CONGESTIVE [None]
  - GOUT [None]
